FAERS Safety Report 15499085 (Version 2)
Quarter: 2018Q4

REPORT INFORMATION
  Report Type: Spontaneous
  Country: US (occurrence: US)
  Receive Date: 20181015
  Receipt Date: 20181017
  Transmission Date: 20190205
  Serious: Yes (Hospitalization)
  Sender: FDA-Public Use
  Company Number: US-JNJFOC-20181009273

PATIENT
  Sex: Male

DRUGS (6)
  1. INVEGA SUSTENNA [Suspect]
     Active Substance: PALIPERIDONE PALMITATE
     Indication: SCHIZOPHRENIA
     Route: 030
     Dates: start: 20160215
  2. INVEGA SUSTENNA [Suspect]
     Active Substance: PALIPERIDONE PALMITATE
     Indication: ANXIETY
     Route: 030
     Dates: start: 20160215
  3. INVEGA SUSTENNA [Suspect]
     Active Substance: PALIPERIDONE PALMITATE
     Indication: SCHIZOPHRENIA
     Route: 030
     Dates: end: 2016
  4. INVEGA SUSTENNA [Suspect]
     Active Substance: PALIPERIDONE PALMITATE
     Indication: POST-TRAUMATIC STRESS DISORDER
     Route: 030
     Dates: start: 20160215
  5. INVEGA SUSTENNA [Suspect]
     Active Substance: PALIPERIDONE PALMITATE
     Indication: ANXIETY
     Route: 030
     Dates: end: 2016
  6. INVEGA SUSTENNA [Suspect]
     Active Substance: PALIPERIDONE PALMITATE
     Indication: POST-TRAUMATIC STRESS DISORDER
     Route: 030
     Dates: end: 2016

REACTIONS (7)
  - Hospitalisation [Unknown]
  - Drug effect decreased [Unknown]
  - Off label use [Unknown]
  - Wrong product administered [Unknown]
  - Injection site swelling [Unknown]
  - Inappropriate schedule of product administration [Unknown]
  - Injection site erythema [Unknown]

NARRATIVE: CASE EVENT DATE: 2016
